FAERS Safety Report 5166100-6 (Version None)
Quarter: 2006Q4

REPORT INFORMATION
  Report Type: 
  Country: None (occurrence: None)
  Receive Date: 20061129
  Receipt Date: 20061121
  Transmission Date: 20070319
  Serious: Yes (Death, Hospitalization)
  Sender: FDA-Public Use
  Company Number: 163-21880-06081184

PATIENT
  Age: 68 Year
  Sex: Male

DRUGS (1)
  1. REVLIMID [Suspect]
     Indication: MYELODYSPLASTIC SYNDROME
     Dosage: 25 MG, 1 IN 1 D, ORAL
     Route: 048
     Dates: start: 20060206, end: 20060701

REACTIONS (5)
  - ASTHENIA [None]
  - DIARRHOEA [None]
  - HYPERTENSION [None]
  - MALIGNANT NEOPLASM PROGRESSION [None]
  - MYELODYSPLASTIC SYNDROME [None]
